FAERS Safety Report 5378285-7 (Version None)
Quarter: 2007Q2

REPORT INFORMATION
  Report Type: 
  Country: None (occurrence: None)
  Receive Date: 20070530
  Receipt Date: 20070226
  Transmission Date: 20071010
  Serious: No
  Sender: FDA-Public Use
  Company Number: 2007PV030650

PATIENT
  Age: 43 Year
  Sex: Female
  Weight: 71.6683 kg

DRUGS (4)
  1. BYETTA [Suspect]
     Indication: DIABETES MELLITUS NON-INSULIN-DEPENDENT
     Dosage: 5 MCG; BID; SC; 5 MCG; QD; SC
     Route: 058
     Dates: start: 20070126, end: 20070202
  2. BYETTA [Suspect]
     Indication: DIABETES MELLITUS NON-INSULIN-DEPENDENT
     Dosage: 5 MCG; BID; SC; 5 MCG; QD; SC
     Route: 058
     Dates: start: 20070202
  3. GLIMEPIRIDE [Concomitant]
  4. METFORMIN HCL [Concomitant]

REACTIONS (3)
  - BRONCHITIS [None]
  - FEELING JITTERY [None]
  - SOMNOLENCE [None]
